FAERS Safety Report 5361273-4 (Version None)
Quarter: 2007Q2

REPORT INFORMATION
  Report Type: 
  Country: None (occurrence: None)
  Receive Date: 20070614
  Receipt Date: 20070529
  Transmission Date: 20071010
  Serious: Yes (Hospitalization)
  Sender: FDA-Public Use
  Company Number: 8024401

PATIENT
  Age: 7 Year
  Sex: Male

DRUGS (1)
  1. EQUASYM [Suspect]

REACTIONS (3)
  - ASTHMA [None]
  - HYPERSENSITIVITY [None]
  - URTICARIA [None]
